FAERS Safety Report 4973339-9 (Version None)
Quarter: 2006Q2

REPORT INFORMATION
  Report Type: 
  Country: None (occurrence: None)
  Receive Date: 20060414
  Receipt Date: 20051221
  Transmission Date: 20061013
  Serious: Yes (Hospitalization, Other)
  Sender: FDA-Public Use
  Company Number: US-MERCK-0512USA03423

PATIENT
  Age: 77 Year
  Sex: Female
  Weight: 91 kg

DRUGS (8)
  1. VIOXX [Suspect]
     Indication: OSTEOARTHRITIS
     Route: 048
     Dates: start: 19991229, end: 20031215
  2. TOPROL-XL [Concomitant]
     Route: 065
  3. SYNTHROID [Concomitant]
     Route: 065
  4. DOXEPIN HYDROCHLORIDE [Concomitant]
     Route: 065
  5. AMARYL [Concomitant]
     Route: 065
  6. BENICAR [Concomitant]
     Route: 065
  7. ATROVENT [Concomitant]
     Route: 065
  8. COVERA-HS [Concomitant]
     Route: 065

REACTIONS (5)
  - BLOOD CHOLESTEROL INCREASED [None]
  - CORONARY ARTERY DISEASE [None]
  - KNEE ARTHROPLASTY [None]
  - MYOCARDIAL INFARCTION [None]
  - RENAL FAILURE [None]
